FAERS Safety Report 9717867 (Version 3)
Quarter: 2013Q4

REPORT INFORMATION
  Report Type: Spontaneous
  Country: IL (occurrence: IL)
  Receive Date: 20131127
  Receipt Date: 20131213
  Transmission Date: 20140711
  Serious: Yes (Hospitalization, Other)
  Sender: FDA-Public Use
  Company Number: IL-009507513-1311ISR010656

PATIENT
  Age: 21 Year
  Sex: Male

DRUGS (2)
  1. PROPECIA [Suspect]
     Indication: ANDROGENETIC ALOPECIA
     Dosage: UNK
     Route: 048
     Dates: start: 201205, end: 201305
  2. ZETO [Concomitant]
     Indication: URINARY TRACT INFECTION
     Dosage: UNK
     Route: 048
     Dates: start: 20130410

REACTIONS (7)
  - Rhabdomyolysis [Recovered/Resolved]
  - Blood creatine phosphokinase increased [Recovered/Resolved]
  - Chest pain [Recovering/Resolving]
  - Hypersensitivity [Unknown]
  - Sexually transmitted disease [Unknown]
  - Ligament sprain [Recovered/Resolved]
  - Oedema [Recovered/Resolved]
